FAERS Safety Report 10237636 (Version 7)
Quarter: 2014Q4

REPORT INFORMATION
  Report Type: Report from Study
  Country: GB (occurrence: GB)
  Receive Date: 20140616
  Receipt Date: 20141126
  Transmission Date: 20150528
  Serious: Yes (Other)
  Sender: FDA-Public Use
  Company Number: GB-ROCHE-1415780

PATIENT
  Sex: Female

DRUGS (1)
  1. HERCEPTIN [Suspect]
     Active Substance: TRASTUZUMAB
     Indication: PRODUCT USED FOR UNKNOWN INDICATION
     Route: 058

REACTIONS (20)
  - Arthralgia [Unknown]
  - Nasopharyngitis [Unknown]
  - Back pain [Unknown]
  - Onychoclasis [Unknown]
  - Hot flush [Unknown]
  - Chest pain [Unknown]
  - Insomnia [Unknown]
  - Nasal ulcer [Unknown]
  - Wheezing [Unknown]
  - Hypertension [Unknown]
  - Pain in extremity [Unknown]
  - Weight increased [Unknown]
  - Neuropathy peripheral [Unknown]
  - Lower respiratory tract infection [Unknown]
  - Nausea [Unknown]
  - Peripheral swelling [Unknown]
  - Tenderness [Unknown]
  - Cough [Not Recovered/Not Resolved]
  - Dyspnoea exertional [Unknown]
  - Fatigue [Unknown]
